FAERS Safety Report 6375328-9 (Version None)
Quarter: 2009Q3

REPORT INFORMATION
  Report Type: 
  Country: None (occurrence: None)
  Receive Date: 20090924
  Receipt Date: 20090916
  Transmission Date: 20100115
  Serious: Yes (Death)
  Sender: FDA-Public Use
  Company Number: B0593871A

PATIENT
  Age: 85 Year
  Sex: Female
  Weight: 59 kg

DRUGS (1)
  1. ARIXTRA [Suspect]
     Indication: DEEP VEIN THROMBOSIS
     Dosage: 7.5MG PER DAY
     Route: 058
     Dates: start: 20090601, end: 20090601

REACTIONS (1)
  - CEREBRAL HAEMORRHAGE [None]
